FAERS Safety Report 11633648 (Version 1)
Quarter: 2015Q4

REPORT INFORMATION
  Report Type: Spontaneous
  Country: BG (occurrence: BG)
  Receive Date: 20151015
  Receipt Date: 20151015
  Transmission Date: 20160304
  Serious: Yes (Death, Hospitalization, Other)
  Sender: FDA-Public Use
  Company Number: BG-ASTRAZENECA-2015SE98969

PATIENT
  Age: 72 Year
  Sex: Female

DRUGS (2)
  1. BRILIQUE [Suspect]
     Active Substance: TICAGRELOR
     Indication: ACUTE MYOCARDIAL INFARCTION
     Route: 048
  2. ACETYLSALICYLIC ACID [Concomitant]
     Active Substance: ASPIRIN

REACTIONS (10)
  - Myocardial infarction [Unknown]
  - Asthenia [Unknown]
  - Pallor [Unknown]
  - Cold sweat [Unknown]
  - Drug dose omission [Unknown]
  - Left ventricular dysfunction [Fatal]
  - Haemoglobin decreased [Unknown]
  - Cardiogenic shock [Fatal]
  - Blood glucose increased [Unknown]
  - Ejection fraction decreased [Unknown]
